FAERS Safety Report 23389468 (Version 1)
Quarter: 2024Q1

REPORT INFORMATION
  Report Type: Report from Study
  Country: US (occurrence: US)
  Receive Date: 20240110
  Receipt Date: 20240110
  Transmission Date: 20240409
  Serious: Yes (Hospitalization)
  Sender: FDA-Public Use
  Company Number: US-ABBVIE-5577586

PATIENT
  Sex: Female
  Weight: 113 kg

DRUGS (16)
  1. LEXAPRO [Suspect]
     Active Substance: ESCITALOPRAM OXALATE
     Indication: Bipolar disorder
     Dosage: FORM STRENGTH: 10 MILLIGRAM?LAST ADMINISTRATION- 2023
     Route: 065
     Dates: start: 202301
  2. LEXAPRO [Suspect]
     Active Substance: ESCITALOPRAM OXALATE
     Indication: Bipolar disorder
     Dosage: FORM STRENGTH: 10 MILLIGRAM
     Route: 065
     Dates: end: 202303
  3. LEXAPRO [Suspect]
     Active Substance: ESCITALOPRAM OXALATE
     Indication: Bipolar disorder
     Dosage: FORM STRENGTH: 20 MILLIGRAM?LAST ADMINISTRATION- 2023
     Route: 065
     Dates: start: 202309
  4. LEXAPRO [Suspect]
     Active Substance: ESCITALOPRAM OXALATE
     Indication: Bipolar disorder
     Dosage: FORM STRENGTH: 10 MILLIGRAM
     Route: 065
     Dates: start: 202401
  5. NAPROXEN [Concomitant]
     Active Substance: NAPROXEN
     Indication: Arthritis
     Dosage: DOSE: 500 MG TWICE DAILY
  6. ZOFRAN [Concomitant]
     Active Substance: ONDANSETRON HYDROCHLORIDE
     Indication: Nausea
     Dosage: DOSE: 4 MG EVERY 4-6 HRS AS NEEDED
  7. VISTARIL [Concomitant]
     Active Substance: HYDROXYZINE PAMOATE
     Indication: Anxiety
  8. VITAMIN D [Concomitant]
     Active Substance: VITAMIN D NOS
     Indication: Product used for unknown indication
     Dosage: DOSE: 50000 UNITS
  9. WELCHOL [Concomitant]
     Active Substance: COLESEVELAM HYDROCHLORIDE
     Indication: Diarrhoea
     Dosage: DOSE: 625 MG
  10. ZANAFLEX [Concomitant]
     Active Substance: TIZANIDINE HYDROCHLORIDE
     Indication: Muscle spasms
  11. PROTONIX [Concomitant]
     Active Substance: PANTOPRAZOLE SODIUM
     Indication: Gastrooesophageal reflux disease
     Dosage: DOSE: 40 MG TWICE DAILY
  12. AZOR [Concomitant]
     Active Substance: AMLODIPINE BESYLATE\OLMESARTAN MEDOXOMIL
     Indication: Blood pressure measurement
     Dosage: DOSE: 520 MG
  13. TRINTELLIX [Suspect]
     Active Substance: VORTIOXETINE HYDROBROMIDE
     Indication: Bipolar disorder
     Dosage: FORM STRENGTH: 20 MILLIGRAM
     Route: 065
     Dates: start: 202303, end: 202303
  14. EZETIMIBE [Concomitant]
     Active Substance: EZETIMIBE
     Indication: Blood cholesterol
     Dosage: DOSE: 10 MG
  15. LITHIUM [Suspect]
     Active Substance: LITHIUM
     Indication: Mania
     Route: 065
     Dates: start: 2023
  16. LEVOTHYROXINE [Concomitant]
     Active Substance: LEVOTHYROXINE
     Indication: Product used for unknown indication
     Dosage: DOSE: 100 MCG ONCE DAILY

REACTIONS (4)
  - Mania [Recovered/Resolved]
  - Drug ineffective [Not Recovered/Not Resolved]
  - Overdose [Not Recovered/Not Resolved]
  - Therapeutic product effect incomplete [Unknown]

NARRATIVE: CASE EVENT DATE: 20230101
